FAERS Safety Report 14279998 (Version 1)
Quarter: 2017Q4

REPORT INFORMATION
  Report Type: Spontaneous
  Country: US (occurrence: US)
  Receive Date: 20171212
  Receipt Date: 20171212
  Transmission Date: 20180321
  Serious: Yes (Life-Threatening)
  Sender: FDA-Public Use
  Company Number: None

PATIENT
  Sex: Male
  Weight: 18.05 kg

DRUGS (8)
  1. ZYRTEC [Concomitant]
     Active Substance: CETIRIZINE HYDROCHLORIDE
  2. EPIPEN [Concomitant]
     Active Substance: EPINEPHRINE
  3. FERROUS SULFATE. [Concomitant]
     Active Substance: FERROUS SULFATE
  4. PROAIR HFA [Concomitant]
     Active Substance: ALBUTEROL SULFATE
  5. CEFDINIR. [Suspect]
     Active Substance: CEFDINIR
     Indication: SINUSITIS
     Dosage: ?          QUANTITY:2.5 ML;?
     Route: 048
     Dates: start: 20171021, end: 20171021
  6. NASONEX [Concomitant]
     Active Substance: MOMETASONE FUROATE
  7. AUVI-Q [Concomitant]
     Active Substance: EPINEPHRINE
  8. QVAR [Concomitant]
     Active Substance: BECLOMETHASONE DIPROPIONATE

REACTIONS (7)
  - Screaming [None]
  - Product use complaint [None]
  - Eye pain [None]
  - Eye swelling [None]
  - Swelling face [None]
  - Anaphylactic reaction [None]
  - Abdominal pain upper [None]

NARRATIVE: CASE EVENT DATE: 20171021
